FAERS Safety Report 21236020 (Version 2)
Quarter: 2022Q3

REPORT INFORMATION
  Report Type: Spontaneous
  Country: US (occurrence: US)
  Receive Date: 20220822
  Receipt Date: 20220829
  Transmission Date: 20221026
  Serious: No
  Sender: FDA-Public Use
  Company Number: US-BoehringerIngelheim-2022-BI-187477

PATIENT
  Age: 97 Year
  Sex: Female

DRUGS (1)
  1. STIOLTO RESPIMAT [Suspect]
     Active Substance: OLODATEROL HYDROCHLORIDE\TIOTROPIUM BROMIDE MONOHYDRATE
     Indication: Chronic obstructive pulmonary disease
     Dosage: 1 PUFF EVERY 12 HOURS
     Route: 055
     Dates: start: 2020

REACTIONS (5)
  - Fall [Unknown]
  - Tremor [Recovered/Resolved]
  - Upper limb fracture [Unknown]
  - Wrong technique in product usage process [Unknown]
  - Muscular weakness [Unknown]

NARRATIVE: CASE EVENT DATE: 20220701
